FAERS Safety Report 22123694 (Version 1)
Quarter: 2023Q1

REPORT INFORMATION
  Report Type: Report from Study
  Country: US (occurrence: US)
  Receive Date: 20230322
  Receipt Date: 20230322
  Transmission Date: 20230418
  Serious: Yes (Other)
  Sender: FDA-Public Use
  Company Number: US-UCBSA-2022072061

PATIENT
  Age: 72 Year
  Sex: Male

DRUGS (3)
  1. LACOSAMIDE [Suspect]
     Active Substance: LACOSAMIDE
     Indication: Seizure
     Dosage: 200 MILLIGRAM, 2X/DAY (BID)
  2. BRIVIACT [Suspect]
     Active Substance: BRIVARACETAM
     Indication: Product used for unknown indication
     Dosage: 50 MILLIGRAM
  3. NAYZILAM [Suspect]
     Active Substance: MIDAZOLAM
     Indication: Product used for unknown indication
     Dosage: 5 MILLIGRAM

REACTIONS (3)
  - Seizure [Unknown]
  - Stress [Unknown]
  - Depression [Not Recovered/Not Resolved]

NARRATIVE: CASE EVENT DATE: 20221219
